FAERS Safety Report 23868394 (Version 1)
Quarter: 2024Q2

REPORT INFORMATION
  Report Type: Spontaneous
  Country: US (occurrence: None)
  Receive Date: 20240516
  Receipt Date: 20240516
  Transmission Date: 20240716
  Serious: Yes (Life-Threatening, Hospitalization)
  Sender: FDA-Public Use
  Company Number: None

PATIENT
  Age: 49 Year
  Sex: Female

DRUGS (1)
  1. AMYL NITRITE [Suspect]
     Active Substance: AMYL NITRITE
     Indication: Product used for unknown indication
     Dosage: 1 BOTTLE ORAL?
     Route: 048
     Dates: start: 20230120, end: 20230120

REACTIONS (4)
  - Fall [None]
  - Movement disorder [None]
  - Speech disorder [None]
  - Product quality issue [None]

NARRATIVE: CASE EVENT DATE: 20230122
